FAERS Safety Report 4439184-8 (Version None)
Quarter: 2004Q3

REPORT INFORMATION
  Report Type: 
  Country: None (occurrence: None)
  Receive Date: 20040831
  Receipt Date: 20040820
  Transmission Date: 20050211
  Serious: Yes (Other)
  Sender: FDA-Public Use
  Company Number: 8725

PATIENT
  Age: 65 Year
  Sex: Male

DRUGS (7)
  1. CYTARABINE [Suspect]
     Indication: ACUTE MYELOID LEUKAEMIA
     Dosage: 180 MG BID IV
     Route: 042
  2. ZAVEDOS [Suspect]
     Indication: ACUTE MYELOID LEUKAEMIA
     Dosage: 18 MG DAILY IV
     Route: 042
  3. PHENYTOIN [Concomitant]
  4. PHENOBARBITONE [Concomitant]
  5. ACYCLOVIR [Concomitant]
  6. FLUCONAZOLE [Concomitant]
  7. LANSOPRAZOLE [Concomitant]

REACTIONS (1)
  - NEUROPATHY PERIPHERAL [None]
